FAERS Safety Report 16789231 (Version 2)
Quarter: 2019Q3

REPORT INFORMATION
  Report Type: Spontaneous
  Country: NL (occurrence: NL)
  Receive Date: 20190910
  Receipt Date: 20190920
  Transmission Date: 20191005
  Serious: Yes (Hospitalization, Other)
  Sender: FDA-Public Use
  Company Number: NL-TEVA-2019-NL-1103684

PATIENT
  Sex: Male
  Weight: 4 kg

DRUGS (5)
  1. PAROXETINE TABLET, 20 MG (MILLIGRAM) [Suspect]
     Active Substance: PAROXETINE
     Indication: ANXIETY
  2. OMEPRAZOL [Concomitant]
     Active Substance: OMEPRAZOLE
  3. PAROXETINE TABLET, 20 MG (MILLIGRAM) [Suspect]
     Active Substance: PAROXETINE
     Indication: POST-TRAUMATIC STRESS DISORDER
     Dosage: 1X PER DAY 1 PIECE, 20MG PER DAY
  4. ALGELDRAAT/MAGNESIUMHYDROXIDE [Concomitant]
  5. EUTHYROX [Concomitant]
     Active Substance: LEVOTHYROXINE SODIUM

REACTIONS (3)
  - Seizure [Recovered/Resolved]
  - Maternal exposure during pregnancy [Unknown]
  - Neonatal respiratory failure [Recovered/Resolved]
